FAERS Safety Report 9637475 (Version 1)
Quarter: 2013Q4

REPORT INFORMATION
  Report Type: Spontaneous
  Country: DE (occurrence: US)
  Receive Date: 20131022
  Receipt Date: 20131022
  Transmission Date: 20140711
  Serious: Yes (Death)
  Sender: FDA-Public Use
  Company Number: DE-OTSUKA-US-2013-11936

PATIENT
  Sex: 0

DRUGS (7)
  1. BUSULFEX [Suspect]
     Indication: BONE MARROW CONDITIONING REGIMEN
     Dosage: UNK
  2. FLUDARABINE [Concomitant]
     Indication: ACUTE MYELOID LEUKAEMIA
     Dosage: UNK, HIGH DOSE
  3. AMSACRINE [Concomitant]
     Indication: ACUTE MYELOID LEUKAEMIA
     Dosage: UNK, HIGH DOSE
  4. CYTARABINE [Concomitant]
     Indication: ACUTE MYELOID LEUKAEMIA
     Dosage: UNK, HIGH DOSE
  5. CYCLOPHOSPHAMIDE [Concomitant]
     Indication: ACUTE MYELOID LEUKAEMIA
     Dosage: UNK
  6. METHOTREXATE [Concomitant]
     Indication: PROPHYLAXIS AGAINST GRAFT VERSUS HOST DISEASE
  7. CICLOSPORIN A [Concomitant]
     Indication: PROPHYLAXIS AGAINST GRAFT VERSUS HOST DISEASE
     Dosage: UNK

REACTIONS (1)
  - Toxicity to various agents [Fatal]
